FAERS Safety Report 14859456 (Version 2)
Quarter: 2018Q3

REPORT INFORMATION
  Report Type: Spontaneous
  Country: US (occurrence: US)
  Receive Date: 20180508
  Receipt Date: 20180919
  Transmission Date: 20181010
  Serious: No
  Sender: FDA-Public Use
  Company Number: US-SHIRE-US201816883

PATIENT
  Sex: Male
  Weight: 22.68 kg

DRUGS (3)
  1. ADDERALL XR [Suspect]
     Active Substance: AMPHETAMINE ASPARTATE\AMPHETAMINE SULFATE\DEXTROAMPHETAMINE SACCHARATE\DEXTROAMPHETAMINE SULFATE
     Dosage: 10 MG, 1X/DAY:QD
     Route: 048
     Dates: start: 2017
  2. ADDERALL XR [Suspect]
     Active Substance: AMPHETAMINE ASPARTATE\AMPHETAMINE SULFATE\DEXTROAMPHETAMINE SACCHARATE\DEXTROAMPHETAMINE SULFATE
     Indication: ATTENTION DEFICIT/HYPERACTIVITY DISORDER
     Dosage: 5 MG, 1X/DAY:QD
     Route: 048
     Dates: start: 2017, end: 2017
  3. MELATONIN [Concomitant]
     Active Substance: MELATONIN
     Indication: INSOMNIA

REACTIONS (6)
  - Product quality issue [Unknown]
  - Psychomotor hyperactivity [Recovered/Resolved]
  - Drug tolerance [Recovered/Resolved]
  - Off label use [Recovered/Resolved]
  - Drug effect decreased [Recovered/Resolved]
  - Sleep disorder [Recovered/Resolved]

NARRATIVE: CASE EVENT DATE: 2017
